FAERS Safety Report 20877512 (Version 1)
Quarter: 2022Q2

REPORT INFORMATION
  Report Type: Spontaneous
  Country: TT (occurrence: TT)
  Receive Date: 20220526
  Receipt Date: 20220526
  Transmission Date: 20220721
  Serious: Yes (Hospitalization)
  Sender: FDA-Public Use
  Company Number: TT-BoehringerIngelheim-2022-BI-172717

PATIENT
  Age: 2 Decade
  Sex: Female

DRUGS (6)
  1. LINAGLIPTIN [Suspect]
     Active Substance: LINAGLIPTIN
     Indication: Product used for unknown indication
  2. SYNJARDY [Suspect]
     Active Substance: EMPAGLIFLOZIN\METFORMIN HYDROCHLORIDE
     Indication: Product used for unknown indication
     Dosage: UNIT DOSE: 12.5/850 MG
  3. SYNJARDY [Suspect]
     Active Substance: EMPAGLIFLOZIN\METFORMIN HYDROCHLORIDE
     Dosage: UNIT DOSE: 12.5/850 MG
  4. Tuojeo [Concomitant]
     Indication: Product used for unknown indication
     Dosage: DOSE REDUCED OF BOTH BASAL AND BOLAS INSULIN BY HALF
  5. METFORMIN [Concomitant]
     Active Substance: METFORMIN HYDROCHLORIDE
     Indication: Product used for unknown indication
  6. APIDRA [Concomitant]
     Active Substance: INSULIN GLULISINE
     Indication: Product used for unknown indication
     Dosage: DOSE REDUCED OF BOTH BASAL AND BOLAS INSULIN BY HALF

REACTIONS (2)
  - Glycosylated haemoglobin abnormal [Unknown]
  - Urine ketone body present [Unknown]
